FAERS Safety Report 7420844-1 (Version None)
Quarter: 2011Q2

REPORT INFORMATION
  Report Type: 
  Country: None (occurrence: None)
  Receive Date: 20110418
  Receipt Date: 20110412
  Transmission Date: 20111010
  Serious: Yes (Other)
  Sender: FDA-Public Use
  Company Number: US-PFIZER INC-2011080663

PATIENT
  Sex: Female
  Weight: 86.168 kg

DRUGS (2)
  1. WARFARIN [Concomitant]
     Indication: ANTIPHOSPHOLIPID SYNDROME
     Dosage: UNK
  2. CELEBREX [Suspect]
     Indication: ARTHRITIS
     Dosage: 200 MG, UNK
     Route: 048
     Dates: start: 20110101

REACTIONS (2)
  - RASH [None]
  - INTERNATIONAL NORMALISED RATIO ABNORMAL [None]
